FAERS Safety Report 8171060-X (Version None)
Quarter: 2012Q1

REPORT INFORMATION
  Report Type: 
  Country: None (occurrence: None)
  Receive Date: 20120228
  Receipt Date: 20120216
  Transmission Date: 20120608
  Serious: Yes (Other)
  Sender: FDA-Public Use
  Company Number: PHHY2012DE014357

PATIENT
  Sex: Female

DRUGS (1)
  1. GLEEVEC [Suspect]
     Dosage: 600 MG, PER DAY
     Route: 048
     Dates: start: 20111101, end: 20120201

REACTIONS (1)
  - BRONCHIAL HAEMORRHAGE [None]
